FAERS Safety Report 23290871 (Version 3)
Quarter: 2024Q1

REPORT INFORMATION
  Report Type: Spontaneous
  Country: UY (occurrence: None)
  Receive Date: 20231213
  Receipt Date: 20240307
  Transmission Date: 20240410
  Serious: Yes (Hospitalization)
  Sender: FDA-Public Use
  Company Number: UY-ROCHE-3471163

PATIENT
  Age: 34 Year
  Sex: Female

DRUGS (12)
  1. OCREVUS [Suspect]
     Active Substance: OCRELIZUMAB
     Indication: Product used for unknown indication
     Dosage: LAST ADMINISTRATION 09/JUN/2023
     Route: 042
     Dates: start: 202301
  2. PREGABALIN [Concomitant]
     Active Substance: PREGABALIN
  3. DALFAMPRIDINE [Concomitant]
     Active Substance: DALFAMPRIDINE
  4. RITALIN [Concomitant]
     Active Substance: METHYLPHENIDATE HYDROCHLORIDE
  5. SULBUTIAMINE [Concomitant]
     Active Substance: SULBUTIAMINE
  6. TOPIRAMATE [Concomitant]
     Active Substance: TOPIRAMATE
  7. LANSOPRAZOLE [Concomitant]
     Active Substance: LANSOPRAZOLE
  8. OMEGA 3 [Concomitant]
     Active Substance: CAPSAICIN
  9. OMEGA 6 [Concomitant]
  10. OMEGA 9 FATTY ACIDS [Concomitant]
  11. ZOLPIDEM [Concomitant]
     Active Substance: ZOLPIDEM TARTRATE
  12. CLONAZEPAM [Concomitant]
     Active Substance: CLONAZEPAM

REACTIONS (3)
  - Pneumonia [Unknown]
  - Dyspnoea [Unknown]
  - Meningitis viral [Recovered/Resolved]

NARRATIVE: CASE EVENT DATE: 20231102
